FAERS Safety Report 5370616-7 (Version None)
Quarter: 2007Q2

REPORT INFORMATION
  Report Type: 
  Country: None (occurrence: None)
  Receive Date: 20070622
  Receipt Date: 20070613
  Transmission Date: 20071010
  Serious: Yes (Death, Disabling, Other)
  Sender: FDA-Public Use
  Company Number: 2007JP002339

PATIENT
  Sex: Male

DRUGS (7)
  1. PROGRAF [Suspect]
     Indication: STEM CELL TRANSPLANT
     Dosage: CONTINUOUS, IV DRIP
     Route: 041
  2. FLUDARABINE PHOSPHATE [Concomitant]
  3. CYCLOPHOSPHAMIDE (CYCLOPHOSPHAMIDE) FORMULATION UNKNOWN [Concomitant]
  4. METHOTREXATE [Concomitant]
  5. BUSULFAN (BUSULFAN) FORMULATION UNKNOWN [Concomitant]
  6. MELPHALAN (MELPHALAN) FORMULATION [Concomitant]
  7. METHYLPREDNISOLONE (METHYLPREDNISONE) FORMULATION UNKNOWN [Concomitant]

REACTIONS (4)
  - CYSTITIS HAEMORRHAGIC [None]
  - POSTRENAL FAILURE [None]
  - SHOCK [None]
  - UPPER GASTROINTESTINAL HAEMORRHAGE [None]
